FAERS Safety Report 20513657 (Version 1)
Quarter: 2022Q1

REPORT INFORMATION
  Report Type: Spontaneous
  Country: US (occurrence: US)
  Receive Date: 20220224
  Receipt Date: 20220224
  Transmission Date: 20220423
  Serious: Yes (Other)
  Sender: FDA-Public Use
  Company Number: US-LANTHEUS-LMI-2019-00751

PATIENT
  Age: 80 Year
  Sex: Female

DRUGS (12)
  1. DEFINITY [Suspect]
     Active Substance: PERFLUTREN
     Indication: Stress echocardiogram
     Dosage: 1.5 MILLILITER, (1.5 ML DEFINITY PREPARED IN 8.5 ML DILUENT)
     Route: 042
     Dates: start: 20191120, end: 20191120
  2. RANITIDINE [Concomitant]
     Active Substance: RANITIDINE
     Indication: Product used for unknown indication
     Dosage: UNK
  3. RISEDRONATE SODIUM [Concomitant]
     Active Substance: RISEDRONATE SODIUM
     Indication: Osteoporosis
     Dosage: UNK
  4. AMITRIPTYLINE [Concomitant]
     Active Substance: AMITRIPTYLINE
     Indication: Product used for unknown indication
     Dosage: UNK
  5. GLUCOSAMINE [Concomitant]
     Active Substance: GLUCOSAMINE
     Indication: Supplementation therapy
     Dosage: UNK
  6. CALCIUM [Concomitant]
     Active Substance: CALCIUM
     Indication: Supplementation therapy
     Dosage: UNK
  7. LEVOTHYROXINE [Concomitant]
     Active Substance: LEVOTHYROXINE
     Indication: Product used for unknown indication
     Dosage: UNK
  8. LUTEIN [Concomitant]
     Active Substance: LUTEIN
     Indication: Product used for unknown indication
     Dosage: UNK
  9. VITAMINS [Concomitant]
     Active Substance: VITAMINS
     Indication: Product used for unknown indication
     Dosage: UNK
  10. VERAPAMIL [Concomitant]
     Active Substance: VERAPAMIL HYDROCHLORIDE
     Indication: Product used for unknown indication
     Dosage: UNK
  11. VITAMINS [Concomitant]
     Active Substance: VITAMINS
     Indication: Product used for unknown indication
     Dosage: UNK
  12. VITAMIN D [Concomitant]
     Active Substance: VITAMIN D NOS
     Indication: Product used for unknown indication
     Dosage: UNK

REACTIONS (2)
  - Blood pressure increased [Not Recovered/Not Resolved]
  - Headache [Recovered/Resolved]

NARRATIVE: CASE EVENT DATE: 20191120
